FAERS Safety Report 4716678-9 (Version None)
Quarter: 2005Q3

REPORT INFORMATION
  Report Type: 
  Country: None (occurrence: None)
  Receive Date: 20050719
  Receipt Date: 20050126
  Transmission Date: 20060218
  Serious: Yes (Hospitalization)
  Sender: FDA-Public Use
  Company Number: BE-BRISTOL-MYERS SQUIBB COMPANY-12841268

PATIENT
  Age: 18 Year
  Sex: Male
  Weight: 64 kg

DRUGS (7)
  1. CEFAZOLIN [Suspect]
     Indication: PROPHYLAXIS
     Dosage: PATIENT WAS GIVEN 2 G AT THE BEGINNING OF SURGERY AND 1 G 4 HOURS LATER.
  2. PERFUSALGAN [Suspect]
  3. ROCURONIUM BROMIDE [Suspect]
  4. SEVOFLURANE [Suspect]
  5. METHYLPREDNISOLONE 16MG TAB [Suspect]
  6. REMIFENTANIL HCL [Suspect]
  7. NICARDIPINE HCL [Suspect]

REACTIONS (2)
  - HEPATIC ENZYME INCREASED [None]
  - THROMBOTIC THROMBOCYTOPENIC PURPURA [None]
